FAERS Safety Report 24541134 (Version 2)
Quarter: 2024Q4

REPORT INFORMATION
  Report Type: Spontaneous
  Country: US (occurrence: US)
  Receive Date: 20241023
  Receipt Date: 20241024
  Transmission Date: 20250114
  Serious: Yes (Other)
  Sender: PFIZER
  Company Number: US-PFIZER INC-202400280776

PATIENT
  Age: 81 Year
  Sex: Male
  Weight: 104.33 kg

DRUGS (4)
  1. PAXLOVID [Suspect]
     Active Substance: NIRMATRELVIR\RITONAVIR
     Indication: COVID-19 treatment
     Dosage: [NIRMATRELVIR 300 MG]/[RITONAVIR 100 MG]; 2X/DAY
     Route: 048
     Dates: start: 20241017
  2. MESALAMINE [Concomitant]
     Active Substance: MESALAMINE
     Indication: Colitis ulcerative
     Dosage: EVERY DAY (4 OUNCES IN EACH DOSE)
     Route: 054
  3. MESALAMINE [Concomitant]
     Active Substance: MESALAMINE
     Dosage: EVERY 2 DAYS (4 OUNCES IN EACH DOSE)
     Route: 054
  4. MESALAMINE [Concomitant]
     Active Substance: MESALAMINE
     Dosage: EVERY 3 DAYS (4 OUNCES IN EACH DOSE)
     Route: 054

REACTIONS (3)
  - Haemorrhage [Recovered/Resolved]
  - Flatulence [Unknown]
  - Diarrhoea [Unknown]

NARRATIVE: CASE EVENT DATE: 20241018
